FAERS Safety Report 5573740-9 (Version None)
Quarter: 2007Q4

REPORT INFORMATION
  Report Type: 
  Country: None (occurrence: None)
  Receive Date: 20071226
  Receipt Date: 20071220
  Transmission Date: 20080405
  Serious: Yes (Hospitalization)
  Sender: FDA-Public Use
  Company Number: US-BRISTOL-MYERS SQUIBB COMPANY-13832712

PATIENT
  Age: 60 Year
  Sex: Female

DRUGS (1)
  1. IXABEPILONE [Suspect]
     Indication: NEOPLASM MALIGNANT
     Route: 042
     Dates: start: 20070625, end: 20070625

REACTIONS (2)
  - DEHYDRATION [None]
  - NEUTROPENIA [None]
